FAERS Safety Report 18007060 (Version 2)
Quarter: 2020Q4

REPORT INFORMATION
  Report Type: Spontaneous
  Country: CA (occurrence: CA)
  Receive Date: 20200710
  Receipt Date: 20201217
  Transmission Date: 20210113
  Serious: Yes (Other)
  Sender: FDA-Public Use
  Company Number: CA-PFIZER INC-2019185925

PATIENT
  Age: 74 Year
  Sex: Male

DRUGS (3)
  1. LAX-A-DAY [Concomitant]
     Active Substance: POLYETHYLENE GLYCOL 3350
     Dosage: UNK, 1X/DAY HALF PREVIOUS DOSE (UNSPECIFIED) OD (ONCE DAILY)
     Route: 065
     Dates: start: 2019
  2. XELJANZ [Suspect]
     Active Substance: TOFACITINIB CITRATE
     Indication: COLITIS ULCERATIVE
     Dosage: 10 MG, 2X/DAY
     Route: 048
     Dates: start: 20190419
  3. LAXADYL [Concomitant]
     Dosage: UNK

REACTIONS (4)
  - Anorectal swelling [Unknown]
  - Rectal ulcer [Unknown]
  - Faecal calprotectin increased [Recovering/Resolving]
  - Therapeutic product effect incomplete [Unknown]
